FAERS Safety Report 8740578 (Version 2)
Quarter: 2013Q4

REPORT INFORMATION
  Report Type: Spontaneous
  Country: US (occurrence: US)
  Receive Date: 20120823
  Receipt Date: 20131101
  Transmission Date: 20140711
  Serious: No
  Sender: FDA-Public Use
  Company Number: US-009507513-1208USA008511

PATIENT
  Age: 34 Year
  Sex: Female

DRUGS (1)
  1. SAPHRIS [Suspect]
     Indication: BIPOLAR DISORDER
     Dosage: 10 MG, HS
     Route: 060
     Dates: start: 201202, end: 201207

REACTIONS (2)
  - Sedation [Not Recovered/Not Resolved]
  - Inappropriate schedule of drug administration [Unknown]
